FAERS Safety Report 9602301 (Version 2)
Quarter: 2013Q4

REPORT INFORMATION
  Report Type: Spontaneous
  Country: JP (occurrence: JP)
  Receive Date: 20131007
  Receipt Date: 20131025
  Transmission Date: 20140711
  Serious: Yes (Death)
  Sender: FDA-Public Use
  Company Number: JP-PFIZER INC-2013283076

PATIENT
  Age: 25 Year
  Sex: Male

DRUGS (3)
  1. SOLU-MEDROL [Suspect]
     Indication: IMMUNOSUPPRESSION
  2. PROGRAF [Concomitant]
     Indication: IMMUNOSUPPRESSION
     Route: 048
  3. SOLU-MEDROL [Suspect]
     Indication: GRAFT VERSUS HOST DISEASE
     Dosage: UNK

REACTIONS (1)
  - Thrombotic microangiopathy [Fatal]
